FAERS Safety Report 21541375 (Version 4)
Quarter: 2022Q4

REPORT INFORMATION
  Report Type: Report from Study
  Country: DE (occurrence: DE)
  Receive Date: 20221102
  Receipt Date: 20221115
  Transmission Date: 20230113
  Serious: Yes (Hospitalization)
  Sender: FDA-Public Use
  Company Number: DE-EXELIXIS-XL18422057338

PATIENT

DRUGS (4)
  1. CABOZANTINIB [Suspect]
     Active Substance: CABOZANTINIB
     Indication: Adrenal gland cancer metastatic
     Dosage: 60 MG, QD
     Route: 048
     Dates: start: 20220518, end: 20221018
  2. ISTURISA [Concomitant]
     Active Substance: OSILODROSTAT PHOSPHATE
     Indication: Hyperadrenocorticism
  3. METRONIDAZOLE [Concomitant]
     Active Substance: METRONIDAZOLE
     Indication: Infection
  4. CEFUROXIME [Concomitant]
     Active Substance: CEFUROXIME
     Indication: Infection

REACTIONS (2)
  - Skin infection [Recovered/Resolved with Sequelae]
  - Anal abscess [Recovered/Resolved with Sequelae]

NARRATIVE: CASE EVENT DATE: 20221018
